FAERS Safety Report 4976064-3 (Version None)
Quarter: 2006Q2

REPORT INFORMATION
  Report Type: 
  Country: None (occurrence: None)
  Receive Date: 20060412
  Receipt Date: 20060401
  Transmission Date: 20061013
  Serious: Yes (Hospitalization)
  Sender: FDA-Public Use
  Company Number: GXKR2006JP01903

PATIENT
  Age: 5 Year
  Sex: Male

DRUGS (1)
  1. PARACETAMOL G-PARC+SUP (PARACETAMOL) SUPPOSITORY [Suspect]
     Indication: PYREXIA
     Dosage: 100 MG RECTAL
     Route: 054

REACTIONS (5)
  - CRYING [None]
  - DELIRIUM [None]
  - ELECTROENCEPHALOGRAM ABNORMAL [None]
  - IRRITABILITY [None]
  - SPEECH DISORDER [None]
